FAERS Safety Report 7370643-4 (Version None)
Quarter: 2011Q1

REPORT INFORMATION
  Report Type: 
  Country: None (occurrence: None)
  Receive Date: 20110323
  Receipt Date: 20110316
  Transmission Date: 20110831
  Serious: Yes (Hospitalization)
  Sender: FDA-Public Use
  Company Number: US-GILEAD-2011-0035512

PATIENT
  Sex: Female
  Weight: 49.94 kg

DRUGS (20)
  1. REVATIO [Concomitant]
  2. SPIRIVA [Concomitant]
  3. VENTOLIN [Concomitant]
  4. REQUIP [Concomitant]
  5. LETAIRIS [Suspect]
     Indication: PULMONARY HYPERTENSION
     Route: 048
     Dates: start: 20100224
  6. TYVASO [Concomitant]
  7. MIRALAX [Concomitant]
  8. OMEPRAZOLE [Concomitant]
  9. PLAVIX [Concomitant]
  10. ASPIRIN [Concomitant]
  11. XOPENEX [Concomitant]
  12. ATIVAN [Concomitant]
  13. OXYGEN [Concomitant]
  14. RESTORIL [Concomitant]
  15. DILTIAZEM [Concomitant]
  16. FLOVENT [Concomitant]
  17. SINGULAIR [Concomitant]
  18. BENADRYL [Concomitant]
  19. DULCOLAX [Concomitant]
  20. EFFEXOR [Concomitant]

REACTIONS (1)
  - RESPIRATORY FAILURE [None]
